FAERS Safety Report 8810234 (Version 2)
Quarter: 2012Q4

REPORT INFORMATION
  Report Type: 
  Country: GT (occurrence: GT)
  Receive Date: 20120926
  Receipt Date: 20121004
  Transmission Date: 20130627
  Serious: Yes (Death)
  Sender: FDA-Public Use
  Company Number: PHHO2005GT04979

PATIENT
  Sex: Male

DRUGS (1)
  1. GLIVEC [Suspect]
     Indication: CHRONIC MYELOID LEUKAEMIA
     Dosage: 600 mg, QD
     Route: 048
     Dates: start: 20030908

REACTIONS (1)
  - Death [Fatal]
